FAERS Safety Report 12529801 (Version 2)
Quarter: 2016Q4

REPORT INFORMATION
  Report Type: Spontaneous
  Country: CH (occurrence: CH)
  Receive Date: 20160706
  Receipt Date: 20161012
  Transmission Date: 20170207
  Serious: Yes (Hospitalization, Other)
  Sender: FDA-Public Use
  Company Number: CH-ROCHE-1789480

PATIENT
  Sex: Male

DRUGS (3)
  1. SYMBICORT [Concomitant]
     Active Substance: BUDESONIDE\FORMOTEROL FUMARATE DIHYDRATE
     Indication: PRODUCT USED FOR UNKNOWN INDICATION
     Route: 065
  2. ATORVASTATIN [Concomitant]
     Active Substance: ATORVASTATIN
     Indication: PRODUCT USED FOR UNKNOWN INDICATION
     Route: 065
  3. XOLAIR [Suspect]
     Active Substance: OMALIZUMAB
     Indication: PRODUCT USED FOR UNKNOWN INDICATION
     Dosage: INJECTION EVERY 14 DAYS
     Route: 065

REACTIONS (17)
  - Alanine aminotransferase increased [Unknown]
  - Prothrombin time shortened [Unknown]
  - Coagulopathy [Unknown]
  - Injection site pain [Unknown]
  - Arthralgia [Unknown]
  - Pigmentation disorder [Unknown]
  - Joint injury [Unknown]
  - Haematoma [Unknown]
  - Aspartate aminotransferase increased [Unknown]
  - Joint effusion [Unknown]
  - Painful respiration [Unknown]
  - Activated partial thromboplastin time prolonged [Unknown]
  - Gait disturbance [Unknown]
  - Haemarthrosis [Unknown]
  - Deep vein thrombosis [Unknown]
  - Pain in extremity [Unknown]
  - Tumour pain [Unknown]

NARRATIVE: CASE EVENT DATE: 20160524
